FAERS Safety Report 18607848 (Version 2)
Quarter: 2021Q3

REPORT INFORMATION
  Report Type: Report from Study
  Country: CA (occurrence: CA)
  Receive Date: 20201211
  Receipt Date: 20210724
  Transmission Date: 20211014
  Serious: Yes (Other)
  Sender: FDA-Public Use
  Company Number: CA-SHIRE-CA202025722

PATIENT
  Age: 44 Year
  Sex: Male

DRUGS (51)
  1. CUVITRU [Suspect]
     Active Substance: HUMAN IMMUNOGLOBULIN G
     Dosage: 12 MILLILITER
     Route: 065
     Dates: start: 20200120
  2. CUVITRU [Suspect]
     Active Substance: HUMAN IMMUNOGLOBULIN G
     Dosage: 12 MILLILITER
     Route: 065
     Dates: start: 20200217
  3. CUVITRU [Suspect]
     Active Substance: HUMAN IMMUNOGLOBULIN G
     Dosage: 10 GRAM (2 GRAM)
     Route: 065
     Dates: start: 20200420
  4. CUVITRU [Suspect]
     Active Substance: HUMAN IMMUNOGLOBULIN G
     Dosage: 10 GRAM (8 GRAM)
     Route: 065
     Dates: start: 20200420
  5. CUVITRU [Suspect]
     Active Substance: HUMAN IMMUNOGLOBULIN G
     Dosage: 10 GRAM (8 GRAM)
     Route: 065
     Dates: start: 20200504
  6. CUVITRU [Suspect]
     Active Substance: HUMAN IMMUNOGLOBULIN G
     Dosage: 10 MILLILITER
     Route: 065
     Dates: start: 20200113
  7. CUVITRU [Suspect]
     Active Substance: HUMAN IMMUNOGLOBULIN G
     Dosage: 12 MILLILITER
     Route: 065
     Dates: start: 20200203
  8. CUVITRU [Suspect]
     Active Substance: HUMAN IMMUNOGLOBULIN G
     Dosage: 10 MILLILITER (8 GRAM)
     Route: 065
     Dates: start: 20200224
  9. CUVITRU [Suspect]
     Active Substance: HUMAN IMMUNOGLOBULIN G
     Dosage: 10 GRAM (8 GRAM)
     Route: 065
     Dates: start: 20200406
  10. CUVITRU [Suspect]
     Active Substance: HUMAN IMMUNOGLOBULIN G
     Dosage: 12 GRAM (8 GRAM)
     Route: 065
     Dates: start: 20200511
  11. CUVITRU [Suspect]
     Active Substance: HUMAN IMMUNOGLOBULIN G
     Dosage: 12 GRAM (8 GRAM)
     Route: 065
     Dates: start: 20200525
  12. CUVITRU [Suspect]
     Active Substance: HUMAN IMMUNOGLOBULIN G
     Dosage: 10 GRAM (2 GRAM)
     Route: 065
     Dates: start: 20200601
  13. CUVITRU [Suspect]
     Active Substance: HUMAN IMMUNOGLOBULIN G
     Dosage: 8 GRAM
     Route: 065
     Dates: start: 20200921
  14. CUVITRU [Suspect]
     Active Substance: HUMAN IMMUNOGLOBULIN G
     Indication: SECONDARY IMMUNODEFICIENCY
     Dosage: 10 MILLILITER
     Route: 065
     Dates: start: 20200113
  15. CUVITRU [Suspect]
     Active Substance: HUMAN IMMUNOGLOBULIN G
     Dosage: 12 GRAM
     Route: 065
     Dates: start: 20200427
  16. CUVITRU [Suspect]
     Active Substance: HUMAN IMMUNOGLOBULIN G
     Dosage: 12 MILLILITER
     Route: 065
     Dates: start: 20200120
  17. CUVITRU [Suspect]
     Active Substance: HUMAN IMMUNOGLOBULIN G
     Dosage: 10 MILLILITER
     Route: 065
     Dates: start: 20200127
  18. CUVITRU [Suspect]
     Active Substance: HUMAN IMMUNOGLOBULIN G
     Dosage: 10 MILLILITER
     Route: 065
     Dates: start: 20200210
  19. CUVITRU [Suspect]
     Active Substance: HUMAN IMMUNOGLOBULIN G
     Dosage: 10 MILLILITER
     Route: 065
     Dates: start: 20200210
  20. CUVITRU [Suspect]
     Active Substance: HUMAN IMMUNOGLOBULIN G
     Dosage: 10 MILLILITER
     Route: 065
     Dates: start: 20200224
  21. CUVITRU [Suspect]
     Active Substance: HUMAN IMMUNOGLOBULIN G
     Dosage: 12 MILLILITER
     Route: 065
     Dates: start: 20200316
  22. CUVITRU [Suspect]
     Active Substance: HUMAN IMMUNOGLOBULIN G
     Dosage: 10 MILLILITER (8 GRAM)
     Route: 065
     Dates: start: 20200309
  23. CUVITRU [Suspect]
     Active Substance: HUMAN IMMUNOGLOBULIN G
     Dosage: 12 MILLILITER (2 GRAM)
     Route: 065
     Dates: start: 20200323
  24. CUVITRU [Suspect]
     Active Substance: HUMAN IMMUNOGLOBULIN G
     Dosage: 12 GRAM (8 GRAM)
     Route: 065
     Dates: start: 20200330
  25. CUVITRU [Suspect]
     Active Substance: HUMAN IMMUNOGLOBULIN G
     Dosage: 10 GRAM (2 GRAM)
     Route: 065
     Dates: start: 20200504
  26. CUVITRU [Suspect]
     Active Substance: HUMAN IMMUNOGLOBULIN G
     Dosage: 12 GRAM
     Route: 065
     Dates: start: 20200511
  27. CUVITRU [Suspect]
     Active Substance: HUMAN IMMUNOGLOBULIN G
     Dosage: 10 GRAM (8 GRAM)
     Route: 065
     Dates: start: 20200601
  28. CUVITRU [Suspect]
     Active Substance: HUMAN IMMUNOGLOBULIN G
     Dosage: 12 GRAM
     Route: 065
     Dates: start: 20200608
  29. CUVITRU [Suspect]
     Active Substance: HUMAN IMMUNOGLOBULIN G
     Dosage: 10 GRAM (8 GRAM)
     Route: 065
     Dates: start: 20200615
  30. CUVITRU [Suspect]
     Active Substance: HUMAN IMMUNOGLOBULIN G
     Dosage: 10 MILLILITER
     Route: 065
     Dates: start: 20200127
  31. CUVITRU [Suspect]
     Active Substance: HUMAN IMMUNOGLOBULIN G
     Dosage: 12 MILLILITER
     Route: 065
     Dates: start: 20200302
  32. CUVITRU [Suspect]
     Active Substance: HUMAN IMMUNOGLOBULIN G
     Dosage: 12 MILLILITER (8 GRAM)
     Route: 065
     Dates: start: 20200302
  33. CUVITRU [Suspect]
     Active Substance: HUMAN IMMUNOGLOBULIN G
     Dosage: 10 MILLILITER (2 GRAM)
     Route: 065
     Dates: start: 20200309
  34. CUVITRU [Suspect]
     Active Substance: HUMAN IMMUNOGLOBULIN G
     Dosage: 12 MILLILITER
     Route: 065
     Dates: start: 20200316
  35. CUVITRU [Suspect]
     Active Substance: HUMAN IMMUNOGLOBULIN G
     Dosage: 10 GRAM (2 GRAM)
     Route: 065
     Dates: start: 20200406
  36. CUVITRU [Suspect]
     Active Substance: HUMAN IMMUNOGLOBULIN G
     Dosage: 12 GRAM (8 GRAM)
     Route: 065
     Dates: start: 20200427
  37. CUVITRU [Suspect]
     Active Substance: HUMAN IMMUNOGLOBULIN G
     Dosage: 12 MILLILITER
     Route: 065
     Dates: start: 20200217
  38. CUVITRU [Suspect]
     Active Substance: HUMAN IMMUNOGLOBULIN G
     Dosage: 12 MILLILITER (8 GRAM)
     Route: 065
     Dates: start: 20200316
  39. CUVITRU [Suspect]
     Active Substance: HUMAN IMMUNOGLOBULIN G
     Dosage: 12 GRAM
     Route: 065
     Dates: start: 20200330
  40. CUVITRU [Suspect]
     Active Substance: HUMAN IMMUNOGLOBULIN G
     Dosage: 20 GRAM, 1/WEEK
     Route: 065
     Dates: start: 20180604
  41. CUVITRU [Suspect]
     Active Substance: HUMAN IMMUNOGLOBULIN G
     Dosage: 12 GRAM
     Route: 065
     Dates: start: 20200413
  42. CUVITRU [Suspect]
     Active Substance: HUMAN IMMUNOGLOBULIN G
     Dosage: 10 GRAM (2 GRAM)
     Route: 065
     Dates: start: 20200519
  43. CUVITRU [Suspect]
     Active Substance: HUMAN IMMUNOGLOBULIN G
     Dosage: 12 GRAM
     Route: 065
     Dates: start: 20200525
  44. CUVITRU [Suspect]
     Active Substance: HUMAN IMMUNOGLOBULIN G
     Dosage: 10 GRAM (2 GRAM)
     Route: 065
     Dates: start: 20200615
  45. CUVITRU [Suspect]
     Active Substance: HUMAN IMMUNOGLOBULIN G
     Dosage: 12 MILLILITER
     Route: 065
     Dates: start: 20200203
  46. CUVITRU [Suspect]
     Active Substance: HUMAN IMMUNOGLOBULIN G
     Dosage: 12 MILLILITER (8 GRAM)
     Route: 065
     Dates: start: 20200323
  47. CUVITRU [Suspect]
     Active Substance: HUMAN IMMUNOGLOBULIN G
     Dosage: 12 GRAM (8 GRAM)
     Route: 065
     Dates: start: 20200413
  48. CUVITRU [Suspect]
     Active Substance: HUMAN IMMUNOGLOBULIN G
     Dosage: 10 GRAM (8 GRAM)
     Route: 065
     Dates: start: 20200519
  49. CUVITRU [Suspect]
     Active Substance: HUMAN IMMUNOGLOBULIN G
     Dosage: 12 GRAM (8 GRAM)
     Route: 065
     Dates: start: 20200608
  50. CUVITRU [Suspect]
     Active Substance: HUMAN IMMUNOGLOBULIN G
     Dosage: 2 GRAM
     Route: 065
     Dates: start: 20200921
  51. HIZENTRA [Concomitant]
     Active Substance: HUMAN IMMUNOGLOBULIN G
     Indication: PRODUCT USED FOR UNKNOWN INDICATION
     Route: 065

REACTIONS (21)
  - Skin texture abnormal [Recovering/Resolving]
  - Haemorrhagic diathesis [Unknown]
  - Urticaria [Recovered/Resolved]
  - Product dose omission issue [Unknown]
  - Nasopharyngitis [Not Recovered/Not Resolved]
  - Sinusitis [Not Recovered/Not Resolved]
  - Pain [Unknown]
  - Fatigue [Unknown]
  - Gallbladder disorder [Unknown]
  - Product availability issue [Unknown]
  - Groin infection [Unknown]
  - Pyrexia [Unknown]
  - Condition aggravated [Unknown]
  - Dyspepsia [Unknown]
  - Incorrect dose administered [Unknown]
  - Penile infection [Not Recovered/Not Resolved]
  - Papule [Unknown]
  - Viral infection [Not Recovered/Not Resolved]
  - Blister [Unknown]
  - Rash [Unknown]
  - Splenomegaly [Unknown]

NARRATIVE: CASE EVENT DATE: 20200113
